FAERS Safety Report 8605114 (Version 2)
Quarter: 2014Q1

REPORT INFORMATION
  Report Type: Spontaneous
  Country: US (occurrence: None)
  Receive Date: 20120323
  Receipt Date: 20130305
  Transmission Date: 20141002
  Serious: Yes (Disabling, Other)
  Sender: FDA-Public Use
  Company Number: 163-21880-11031592

PATIENT
  Age: 86 Year
  Sex: Male

DRUGS (4)
  1. REVLIMID [Suspect]
     Indication: MYELODYSPLASTIC SYNDROME
     Dosage: 5 MG, DAILY X 21 DAYS, PO, 10 MG, DAILY X 21 DAYS, PO
     Route: 048
     Dates: start: 20110124, end: 2011
  2. ALLOPURINOL [Concomitant]
  3. ARANESP [Concomitant]
  4. ASPIRIN (ACETYLSALICYLIC ACID) [Concomitant]

REACTIONS (9)
  - Renal failure [None]
  - Feeling abnormal [None]
  - Nausea [None]
  - Vomiting [None]
  - Abdominal pain [None]
  - Constipation [None]
  - Diarrhoea [None]
  - Decreased appetite [None]
  - Weight decreased [None]
